FAERS Safety Report 21326967 (Version 1)
Quarter: 2022Q3

REPORT INFORMATION
  Report Type: Spontaneous
  Country: CN (occurrence: CN)
  Receive Date: 20220913
  Receipt Date: 20220913
  Transmission Date: 20221026
  Serious: Yes (Other)
  Sender: FDA-Public Use
  Company Number: None

PATIENT
  Age: 57 Year
  Sex: Male
  Weight: 61.4 kg

DRUGS (10)
  1. CYCLOPHOSPHAMIDE [Suspect]
     Active Substance: CYCLOPHOSPHAMIDE
     Indication: Hodgkin^s disease
     Dosage: 1800 MG, QD (DILUTED WITH 0.9% SODIUM CHLORIDE INJECTION 500 ML)
     Route: 041
     Dates: start: 20220801, end: 20220801
  2. SODIUM CHLORIDE [Suspect]
     Active Substance: SODIUM CHLORIDE
     Indication: Medication dilution
     Dosage: 500 ML, QD ,INJECTION (DILUTED WITH CYCLOPHOSPHAMIDE 1800 MG)
     Route: 041
     Dates: start: 20220801, end: 20220801
  3. SODIUM CHLORIDE [Suspect]
     Active Substance: SODIUM CHLORIDE
     Dosage: 500 ML, QD, (DILUTED WITH ETOPOSIDE 1 G)
     Route: 041
     Dates: start: 20220801, end: 20220803
  4. SODIUM CHLORIDE [Suspect]
     Active Substance: SODIUM CHLORIDE
     Dosage: 50 ML, QD, (DILUTED WITH BLEOMYCIN HYDROCHLORIDE15 MG)
     Route: 041
     Dates: start: 20220808, end: 20220808
  5. SODIUM CHLORIDE [Suspect]
     Active Substance: SODIUM CHLORIDE
     Dosage: 180 ML, QD, (DILUTED WITH VINCRISTINE SULFATE 2 MG)
     Route: 042
     Dates: start: 20220808, end: 20220808
  6. DEXTROSE MONOHYDRATE [Suspect]
     Active Substance: DEXTROSE MONOHYDRATE
     Indication: Medication dilution
     Dosage: 100 ML ,QD (DILUTED WITH PIRARUBICIN HYDROCHLORIDE 40 MG)
     Route: 041
     Dates: start: 20220801, end: 20220801
  7. PIRARUBICIN HYDROCHLORIDE [Suspect]
     Active Substance: PIRARUBICIN HYDROCHLORIDE
     Indication: Hodgkin^s disease
     Dosage: 40 MG,QD (DILUTED WITH GLUCOSE INJECTION 100 ML)
     Route: 041
     Dates: start: 20220801, end: 20220801
  8. ETOPOSIDE [Suspect]
     Active Substance: ETOPOSIDE
     Indication: Hodgkin^s disease
     Dosage: 1 G, QD, (DILUTED WITH 0.9% SODIUM CHLORIDE INJECTION 500 ML)
     Route: 041
     Dates: start: 20220801, end: 20220803
  9. BLEOMYCIN HYDROCHLORIDE [Suspect]
     Active Substance: BLEOMYCIN HYDROCHLORIDE
     Indication: Hodgkin^s disease
     Dosage: 15 MG, QD, (DILUTED WITH 0.9% SODIUM CHLORIDE INJECTION 50 ML)
     Route: 041
     Dates: start: 20220808, end: 20220808
  10. VINCRISTINE SULFATE [Suspect]
     Active Substance: VINCRISTINE SULFATE
     Indication: Hodgkin^s disease
     Dosage: 2 MG, QD, (DILUTED WITH SODIUM CHLORIDE INJECTION 180 ML)
     Route: 042
     Dates: start: 20220808, end: 20220808

REACTIONS (1)
  - Myelosuppression [Unknown]

NARRATIVE: CASE EVENT DATE: 20220810
